FAERS Safety Report 4514948-0 (Version None)
Quarter: 2004Q4

REPORT INFORMATION
  Report Type: 
  Country: None (occurrence: None)
  Receive Date: 20041129
  Receipt Date: 20041129
  Transmission Date: 20050328
  Serious: Yes (Other)
  Sender: FDA-Public Use
  Company Number: None

PATIENT
  Age: 55 Year
  Sex: Female
  Weight: 78.0187 kg

DRUGS (1)
  1. KENALOG [Suspect]
     Indication: TENDONITIS
     Dosage: 2 SHOTS  INTRAMUSCU
     Route: 030
     Dates: start: 20040929, end: 20041126

REACTIONS (2)
  - DERMATITIS CONTACT [None]
  - MUSCLE SPASMS [None]
